FAERS Safety Report 8195680-1 (Version None)
Quarter: 2012Q1

REPORT INFORMATION
  Report Type: 
  Country: None (occurrence: None)
  Receive Date: 20120308
  Receipt Date: 20120228
  Transmission Date: 20120608
  Serious: Yes (Hospitalization, Congenital Anomaly)
  Sender: FDA-Public Use
  Company Number: NL-ASTRAZENECA-2012SE13813

PATIENT
  Age: 0 Week
  Sex: Female
  Weight: 0.3 kg

DRUGS (3)
  1. OMEPRAZOLE [Suspect]
     Route: 064
  2. LEVOTHYROXINE SODIUM [Suspect]
     Route: 064
  3. SERTRALINE HYDROCHLORIDE [Suspect]
     Route: 064

REACTIONS (2)
  - APGAR SCORE LOW [None]
  - DYSMORPHISM [None]
